FAERS Safety Report 9102957 (Version 4)
Quarter: 2013Q2

REPORT INFORMATION
  Report Type: Spontaneous
  Country: US (occurrence: US)
  Receive Date: 20130219
  Receipt Date: 20130402
  Transmission Date: 20140414
  Serious: Yes (Hospitalization, Other)
  Sender: FDA-Public Use
  Company Number: US-PFIZER INC-2013060731

PATIENT
  Age: 93 Year
  Sex: Female
  Weight: 68 kg

DRUGS (10)
  1. NORVASC [Suspect]
     Indication: HYPERTENSION
     Dosage: 10 MG, 1X/DAY
     Route: 048
  2. NORVASC [Suspect]
     Dosage: 5 MG, UNK
     Route: 048
  3. NORVASC [Suspect]
     Dosage: 10 MG, 1X/DAY
     Route: 048
     Dates: end: 201204
  4. NORVASC [Suspect]
     Dosage: UNK
     Route: 048
     Dates: start: 2012
  5. LIPITOR [Suspect]
     Indication: BLOOD CHOLESTEROL INCREASED
     Dosage: 20 MG, 1X/DAY
     Dates: end: 201203
  6. LIPITOR [Suspect]
     Dosage: 20 MG, 1X/DAY
     Route: 048
     Dates: end: 201204
  7. MILK OF MAGNESIA [Concomitant]
     Indication: CONSTIPATION
     Dosage: UNK
  8. DULCOLAX [Concomitant]
     Indication: CONSTIPATION
     Dosage: UNK, EVERY FIVE DAYS
  9. THYROID [Concomitant]
     Dosage: 50 UG, UNK
  10. BABY ASPIRIN [Concomitant]
     Dosage: UNK

REACTIONS (10)
  - Fall [Unknown]
  - Loss of consciousness [Unknown]
  - Dehydration [Unknown]
  - Pneumonia [Unknown]
  - Abasia [Unknown]
  - Malaise [Not Recovered/Not Resolved]
  - Blood pressure inadequately controlled [Recovering/Resolving]
  - Panic attack [Unknown]
  - Cardiac disorder [Unknown]
  - Hearing impaired [Unknown]
